FAERS Safety Report 5824593-2 (Version None)
Quarter: 2008Q3

REPORT INFORMATION
  Report Type: 
  Country: None (occurrence: None)
  Receive Date: 20080728
  Receipt Date: 20080715
  Transmission Date: 20090109
  Serious: Yes (Death, Disabling, Other)
  Sender: FDA-Public Use
  Company Number: US-BAYER-200828012NA

PATIENT
  Age: 69 Year
  Sex: Female

DRUGS (32)
  1. MAGNEVIST [Suspect]
     Indication: NUCLEAR MAGNETIC RESONANCE IMAGING
     Dates: start: 20060213, end: 20060213
  2. FERROUS SULFATE TAB [Concomitant]
     Route: 048
  3. REMERON [Concomitant]
     Route: 048
  4. AMBIEN [Concomitant]
     Indication: SLEEP DISORDER
     Route: 048
  5. NEPHROCAP [Concomitant]
  6. NEURONTIN [Concomitant]
     Route: 048
  7. COLACE [Concomitant]
     Route: 048
  8. SENNA [Concomitant]
  9. ASPIRIN EC TBEC [Concomitant]
     Route: 048
  10. COUMADIN [Concomitant]
  11. ATIVAN [Concomitant]
     Route: 048
  12. RENAGEL [Concomitant]
  13. NOVOLOG MIX 70/30 [Concomitant]
  14. MECLIZINE [Concomitant]
  15. FLU VACCINE [Concomitant]
     Dates: start: 20060211, end: 20060211
  16. PPV VACCINE [Concomitant]
     Dates: start: 20060211, end: 20060211
  17. EPOETIN (NON ESRD) [Concomitant]
     Dates: start: 20060215, end: 20060215
  18. DARBEPOETIN [Concomitant]
     Dates: start: 20060219, end: 20060219
  19. METOCLOPRAMIDE [Concomitant]
     Dates: start: 20060218, end: 20060218
  20. METOCLOPRAMIDE [Concomitant]
     Dates: start: 20060212, end: 20060212
  21. METOCLOPRAMIDE [Concomitant]
     Dates: start: 20060219, end: 20060219
  22. METOCLOPRAMIDE [Concomitant]
     Dates: start: 20060213, end: 20060213
  23. DEXTROSE 5% [Concomitant]
     Dates: start: 20060215, end: 20060215
  24. FENTANYL-100 [Concomitant]
     Dates: start: 20060218, end: 20060218
  25. FENTANYL-100 [Concomitant]
     Dates: start: 20060217, end: 20060217
  26. MIDAZOLAM HCL [Concomitant]
     Dates: start: 20060218, end: 20060218
  27. MIDAZOLAM HCL [Concomitant]
     Dates: start: 20060217, end: 20060217
  28. CEFAZOLIN [Concomitant]
     Dates: start: 20060218, end: 20060218
  29. HEPARIN [Concomitant]
     Dates: start: 20060218, end: 20060218
  30. HEPARIN [Concomitant]
     Dates: start: 20060218, end: 20060218
  31. ONDANSETRON [Concomitant]
     Dates: start: 20060218, end: 20060218
  32. PHENYLEPHRINE 1% [Concomitant]
     Dates: start: 20060218, end: 20060218

REACTIONS (25)
  - ARTHROPATHY [None]
  - DRY SKIN [None]
  - DYSPNOEA [None]
  - DYSPNOEA EXERTIONAL [None]
  - EXCORIATION [None]
  - EXTREMITY CONTRACTURE [None]
  - HYPERKERATOSIS [None]
  - HYPOAESTHESIA [None]
  - JOINT SWELLING [None]
  - MASKED FACIES [None]
  - MOBILITY DECREASED [None]
  - NEPHROGENIC SYSTEMIC FIBROSIS [None]
  - OCULAR ICTERUS [None]
  - ONYCHOCLASIS [None]
  - PAIN [None]
  - POOR VENOUS ACCESS [None]
  - PULMONARY FIBROSIS [None]
  - PULMONARY FUNCTION TEST DECREASED [None]
  - QUALITY OF LIFE DECREASED [None]
  - SKIN EXFOLIATION [None]
  - SKIN FIBROSIS [None]
  - SKIN HYPERTROPHY [None]
  - SKIN INDURATION [None]
  - SKIN TIGHTNESS [None]
  - SKIN ULCER [None]
